FAERS Safety Report 8381246-7 (Version None)
Quarter: 2012Q2

REPORT INFORMATION
  Report Type: 
  Country: None (occurrence: None)
  Receive Date: 20120523
  Receipt Date: 20120516
  Transmission Date: 20120825
  Serious: Yes (Other)
  Sender: FDA-Public Use
  Company Number: US-US-EMD SERONO, INC.-7133775

PATIENT
  Sex: Female

DRUGS (2)
  1. BACLOFEN [Concomitant]
     Indication: PRODUCT USED FOR UNKNOWN INDICATION
     Route: 048
  2. REBIF [Suspect]
     Indication: MULTIPLE SCLEROSIS
     Route: 058
     Dates: start: 20110318

REACTIONS (16)
  - MULTIPLE SCLEROSIS [None]
  - ABDOMINAL PAIN UPPER [None]
  - INJECTION SITE DISCOLOURATION [None]
  - INJECTION SITE HAEMATOMA [None]
  - OSTEONECROSIS [None]
  - ARTHRITIS [None]
  - MUSCULOSKELETAL DISCOMFORT [None]
  - SKIN ULCER [None]
  - NAUSEA [None]
  - INSOMNIA [None]
  - HIP DEFORMITY [None]
  - CSF PROTEIN [None]
  - WEIGHT DECREASED [None]
  - STAPHYLOCOCCAL INFECTION [None]
  - VOMITING [None]
  - MUSCLE SPASMS [None]
